FAERS Safety Report 8184843-7 (Version None)
Quarter: 2012Q1

REPORT INFORMATION
  Report Type: 
  Country: None (occurrence: None)
  Receive Date: 20120210
  Receipt Date: 20111013
  Transmission Date: 20120608
  Serious: Yes (Death, Hospitalization)
  Sender: FDA-Public Use
  Company Number: MTX-11-054

PATIENT
  Age: 51 Year
  Sex: Female

DRUGS (11)
  1. CELECOXIB [Concomitant]
  2. ZOLPIDEM [Concomitant]
  3. TYLOX [Concomitant]
  4. FOLIC ACID [Concomitant]
  5. ORLISTAT [Concomitant]
  6. METHOTREXATE [Suspect]
     Indication: RHEUMATOID ARTHRITIS
     Dosage: ORALLY
     Route: 048
     Dates: start: 20110414, end: 20110519
  7. HYDROXYCHLOROQUINE SULFATE [Concomitant]
  8. PAROXETINE HYDROCHLORIDE [Concomitant]
  9. HUMIRA [Concomitant]
  10. M.V.I. [Concomitant]
  11. VITAMIN B-12 [Concomitant]

REACTIONS (1)
  - PNEUMONIA [None]
